FAERS Safety Report 10738234 (Version 1)
Quarter: 2015Q1

REPORT INFORMATION
  Report Type: Spontaneous
  Country: US (occurrence: US)
  Receive Date: 20150126
  Receipt Date: 20150126
  Transmission Date: 20150721
  Serious: Yes (Hospitalization)
  Sender: FDA-Public Use
  Company Number: US-UNITED THERAPEUTICS-UNT-2015-000010

PATIENT
  Sex: Female
  Weight: 84.35 kg

DRUGS (1)
  1. REMODULIN [Suspect]
     Active Substance: TREPROSTINIL
     Indication: PULMONARY ARTERIAL HYPERTENSION
     Dosage: 0.0263 ?G/KG, CONTINUING
     Route: 058
     Dates: start: 20111122, end: 201501

REACTIONS (3)
  - Infusion site abscess [Unknown]
  - Pulmonary hypertension [Unknown]
  - Cor pulmonale acute [Unknown]
